FAERS Safety Report 7269896-2 (Version None)
Quarter: 2011Q1

REPORT INFORMATION
  Report Type: 
  Country: None (occurrence: None)
  Receive Date: 20110202
  Receipt Date: 20110119
  Transmission Date: 20110831
  Serious: Yes (Other)
  Sender: FDA-Public Use
  Company Number: US-ELI_LILLY_AND_COMPANY-US201101004870

PATIENT
  Age: 73 Year
  Sex: Female

DRUGS (3)
  1. FORTEO [Suspect]
     Dosage: UNK, UNKNOWN
  2. ANTIHYPERTENSIVES [Concomitant]
     Indication: HYPERTENSION
     Dosage: UNK, UNKNOWN
  3. ANTIHYPERTENSIVES [Concomitant]
     Dosage: UNK, UNKNOWN

REACTIONS (4)
  - BLOOD PRESSURE INCREASED [None]
  - PELVIC FRACTURE [None]
  - ALOPECIA [None]
  - MALAISE [None]
